FAERS Safety Report 21178898 (Version 1)
Quarter: 2022Q3

REPORT INFORMATION
  Report Type: Spontaneous
  Country: US (occurrence: None)
  Receive Date: 20220804
  Receipt Date: 20220804
  Transmission Date: 20221027
  Serious: Yes (Hospitalization)
  Sender: FDA-Public Use
  Company Number: None

PATIENT
  Age: 70 Year
  Sex: Male
  Weight: 127.19 kg

DRUGS (17)
  1. CAPECITABINE [Suspect]
     Active Substance: CAPECITABINE
     Indication: Colon cancer
     Dosage: OTHER FREQUENCY : BID 7D ON 7D OFF;?
     Route: 048
  2. ELIQUIS [Concomitant]
     Active Substance: APIXABAN
  3. ATORVASTATIN [Concomitant]
     Active Substance: ATORVASTATIN
  4. Carvidilol [Concomitant]
  5. Jarrdiance [Concomitant]
  6. ERGOCALCIFEROL [Concomitant]
     Active Substance: ERGOCALCIFEROL
  7. GABAPENTIN [Concomitant]
     Active Substance: GABAPENTIN
  8. NOVOLOG [Concomitant]
     Active Substance: INSULIN ASPART
  9. BASAGLAR [Concomitant]
     Active Substance: INSULIN GLARGINE
  10. LISINOPRIL [Concomitant]
     Active Substance: LISINOPRIL
  11. OZEMPIC [Concomitant]
     Active Substance: SEMAGLUTIDE
  12. TRAZODONE [Concomitant]
     Active Substance: TRAZODONE HYDROCHLORIDE
  13. LANTUS SOLOSTAR [Concomitant]
     Active Substance: INSULIN GLARGINE
  14. HUMALOG KWIKPEN [Concomitant]
     Active Substance: INSULIN LISPRO
  15. HUMULIN R [Concomitant]
     Active Substance: INSULIN HUMAN
  16. VENOFER [Concomitant]
     Active Substance: IRON SUCROSE
  17. FUROSEMIDE [Concomitant]
     Active Substance: FUROSEMIDE

REACTIONS (3)
  - Haemorrhage [None]
  - Pain [None]
  - Hypotension [None]

NARRATIVE: CASE EVENT DATE: 20220726
